FAERS Safety Report 8720254 (Version 2)
Quarter: 2012Q4

REPORT INFORMATION
  Report Type: 
  Country: DE (occurrence: DE)
  Receive Date: 20120813
  Receipt Date: 20121012
  Transmission Date: 20130627
  Serious: Yes (Other)
  Sender: FDA-Public Use
  Company Number: DE-SANOFI-AVENTIS-2012SA056575

PATIENT
  Age: 45 Year
  Sex: Female
  Weight: 75 kg

DRUGS (1)
  1. QUENSYL [Suspect]
     Indication: SCLERODERMA
     Route: 048
     Dates: start: 201107, end: 201207

REACTIONS (8)
  - Withdrawal arrhythmia [Unknown]
  - Visual impairment [Unknown]
  - Palpitations [Unknown]
  - Heart rate irregular [Unknown]
  - Restlessness [Unknown]
  - Paraesthesia [Unknown]
  - Fatigue [Unknown]
  - Sleep disorder [Unknown]
